FAERS Safety Report 9466703 (Version 4)
Quarter: 2013Q3

REPORT INFORMATION
  Report Type: Spontaneous
  Country: JP (occurrence: JP)
  Receive Date: 20130820
  Receipt Date: 20130911
  Transmission Date: 20140515
  Serious: Yes (Death, Life-Threatening, Other)
  Sender: FDA-Public Use
  Company Number: JP-SANOFI-AVENTIS-2013SA075601

PATIENT
  Age: 70 Year
  Sex: Male
  Weight: 52 kg

DRUGS (36)
  1. ELPLAT [Suspect]
     Indication: COLON CANCER
     Dosage: 79.7 MG/M2
     Route: 041
     Dates: start: 20130531, end: 20130531
  2. ELPLAT [Suspect]
     Indication: COLON CANCER
     Route: 041
     Dates: start: 20130614, end: 20130614
  3. ELPLAT [Suspect]
     Indication: COLON CANCER
     Dosage: DOSE: 119.5 MG/M2
     Route: 041
     Dates: start: 20130313, end: 20130313
  4. ELPLAT [Suspect]
     Indication: COLON CANCER
     Route: 041
     Dates: start: 20130628, end: 20130628
  5. ELPLAT [Suspect]
     Indication: COLON CANCER
     Dosage: DOSE: 119.5 MG/M2
     Route: 041
     Dates: start: 20130403, end: 20130403
  6. ELPLAT [Suspect]
     Indication: COLON CANCER
     Route: 041
     Dates: start: 20130712, end: 20130712
  7. 5-FU [Suspect]
     Indication: COLON CANCER
     Dosage: 332 MG/M2
     Route: 040
     Dates: start: 20130531, end: 20130531
  8. 5-FU [Suspect]
     Indication: COLON CANCER
     Dosage: ROUTE: CONTINOUS INFUSION?3500 MG/BODY/ D1-2 (2324 MG/M2/D1-2)
     Route: 041
     Dates: start: 20130531, end: 20130531
  9. 5-FU [Suspect]
     Indication: COLON CANCER
     Route: 040
     Dates: start: 20130614, end: 20130614
  10. 5-FU [Suspect]
     Indication: COLON CANCER
     Route: 041
     Dates: start: 20130614, end: 20130614
  11. 5-FU [Suspect]
     Indication: COLON CANCER
     Route: 040
     Dates: start: 20130628, end: 20130628
  12. 5-FU [Suspect]
     Indication: COLON CANCER
     Route: 041
     Dates: start: 20130628, end: 20130628
  13. LEVOFOLINATE [Concomitant]
     Dosage: ROUTE: IV INFUSION?199.2 MG/M2
     Dates: start: 20130531, end: 20130531
  14. LEVOFOLINATE [Concomitant]
     Dosage: ROUTE: IV INFUSION
     Dates: start: 20130712, end: 20130712
  15. AVASTIN [Concomitant]
     Dosage: DOSE: 250 MG/BODY
     Dates: start: 20130531, end: 20130531
  16. AVASTIN [Concomitant]
     Dosage: DOSE: 250 MG/BODY
     Dates: start: 20130712, end: 20130712
  17. DEXAMETHASONE SODIUM PHOSPHATE [Concomitant]
     Dates: start: 20130531, end: 20130712
  18. PROEMEND [Concomitant]
     Dates: start: 20130531, end: 20130712
  19. ALOXI [Concomitant]
     Dates: start: 20130531, end: 20130712
  20. BIO THREE [Concomitant]
     Dates: start: 20130501
  21. BORRAZA-G [Concomitant]
     Dosage: FORM: OINTMENT, CREAM
     Dates: start: 20130501
  22. MAGLAX [Concomitant]
     Dates: start: 20130501
  23. LOXONIN [Concomitant]
     Dates: start: 20130501
  24. TAKEPRON [Concomitant]
     Dates: start: 20130501
  25. PRIMPERAN [Concomitant]
     Dates: start: 20130501
  26. SHINLUCK [Concomitant]
     Dates: start: 20130501
  27. BUFFERIN /JPN/ [Concomitant]
     Dates: start: 20130501
  28. NOVORAPID [Concomitant]
  29. INSULIN ASPART [Concomitant]
  30. LACTEC [Concomitant]
     Dates: start: 20130712, end: 20130712
  31. SOLUMEDROL [Concomitant]
     Dates: start: 20130712, end: 20130712
  32. ADRENALINE [Concomitant]
     Dates: start: 20130712, end: 20130712
  33. UNASYN S [Concomitant]
     Dates: start: 20130712, end: 20130712
  34. MEYLON [Concomitant]
     Dates: start: 20130712, end: 20130712
  35. LASIX [Concomitant]
     Dates: start: 20130712, end: 20130712
  36. XELODA [Concomitant]
     Dates: start: 20130313, end: 20130416

REACTIONS (3)
  - Pulmonary oedema [Fatal]
  - Anaphylactic shock [Recovering/Resolving]
  - Haemoglobin decreased [Recovering/Resolving]
